FAERS Safety Report 10642130 (Version 7)
Quarter: 2015Q3

REPORT INFORMATION
  Report Type: Report from Study
  Country: US (occurrence: US)
  Receive Date: 20141210
  Receipt Date: 20150813
  Transmission Date: 20151125
  Serious: Yes (Hospitalization, Other)
  Sender: FDA-Public Use
  Company Number: US-ALEXION PHARMACEUTICALS INC-A201404626

PATIENT

DRUGS (2)
  1. DIURETICS [Suspect]
     Active Substance: UNSPECIFIED INGREDIENT
     Indication: DIURETIC THERAPY
     Dosage: UNK
     Route: 065
  2. SOLIRIS [Suspect]
     Active Substance: ECULIZUMAB
     Indication: PAROXYSMAL NOCTURNAL HAEMOGLOBINURIA
     Dosage: UNK
     Route: 042

REACTIONS (5)
  - Blood lactate dehydrogenase abnormal [Unknown]
  - Dyspnoea [Unknown]
  - Aortic valve disease [Unknown]
  - Muscle spasms [Not Recovered/Not Resolved]
  - Cardiac infection [Unknown]

NARRATIVE: CASE EVENT DATE: 20141203
